FAERS Safety Report 6036993-9 (Version None)
Quarter: 2009Q1

REPORT INFORMATION
  Report Type: 
  Country: None (occurrence: None)
  Receive Date: 20090114
  Receipt Date: 20090106
  Transmission Date: 20090719
  Serious: Yes (Hospitalization)
  Sender: FDA-Public Use
  Company Number: BE-BAYER-200714624GDS

PATIENT
  Age: 74 Year
  Sex: Male

DRUGS (17)
  1. SORAFENIB [Suspect]
     Indication: PROSTATE CANCER
     Route: 048
     Dates: start: 20070810, end: 20070820
  2. SORAFENIB [Suspect]
     Route: 048
     Dates: start: 20070824, end: 20070827
  3. SORAFENIB [Suspect]
     Route: 048
     Dates: start: 20070714, end: 20070730
  4. TAXOTERE [Suspect]
     Indication: PROSTATE CANCER
     Route: 042
     Dates: start: 20070712, end: 20070823
  5. TAXOTERE [Suspect]
     Route: 042
     Dates: start: 20070802, end: 20070802
  6. PREDNISONE TAB [Suspect]
     Indication: PROSTATE CANCER
     Route: 048
     Dates: start: 20070712
  7. DILTIAZEM HCL [Concomitant]
     Indication: HYPERTENSION
     Route: 048
     Dates: start: 19990101, end: 20070805
  8. ARICEPT [Concomitant]
     Indication: AMNESIA
     Route: 048
     Dates: start: 20070802
  9. METFORMAX [Concomitant]
     Indication: DIABETES MELLITUS
     Route: 048
     Dates: start: 20030101
  10. METFORMAX [Concomitant]
     Route: 048
     Dates: start: 20040101
  11. SIMVASTATIN [Concomitant]
     Indication: HYPERCHOLESTEROLAEMIA
     Route: 048
  12. SIMVASTATIN [Concomitant]
     Route: 048
     Dates: start: 20020101
  13. LITICAN [Concomitant]
     Indication: PROPHYLAXIS OF NAUSEA AND VOMITING
     Route: 048
     Dates: start: 20070712
  14. ZOLADEX [Concomitant]
     Indication: PROSTATE CANCER
     Route: 058
  15. BIOCURE [Concomitant]
     Indication: VITAMIN SUPPLEMENTATION
     Route: 048
  16. CORUNO [Concomitant]
     Indication: HYPERTENSION
     Route: 048
     Dates: start: 20070302
  17. BISOPROLOL [Concomitant]
     Indication: HYPERTENSION
     Route: 048

REACTIONS (2)
  - ANGINA PECTORIS [None]
  - FEBRILE NEUTROPENIA [None]
